FAERS Safety Report 12876136 (Version 1)
Quarter: 2016Q4

REPORT INFORMATION
  Report Type: Spontaneous
  Country: US (occurrence: US)
  Receive Date: 20161021
  Receipt Date: 20161021
  Transmission Date: 20170207
  Serious: Yes (Other)
  Sender: FDA-Public Use
  Company Number: None

PATIENT
  Age: 59 Year
  Sex: Male
  Weight: 90.9 kg

DRUGS (1)
  1. PROHANCE [Suspect]
     Active Substance: GADOTERIDOL
     Indication: MASS
     Dosage: ?          OTHER FREQUENCY:SINGLE DOSE;?
     Route: 040
     Dates: start: 20161021, end: 20161021

REACTIONS (3)
  - Vomiting [None]
  - Cough [None]
  - Erythema [None]

NARRATIVE: CASE EVENT DATE: 20161021
